FAERS Safety Report 4338288-8 (Version None)
Quarter: 2004Q2

REPORT INFORMATION
  Report Type: 
  Country: None (occurrence: None)
  Receive Date: 20040414
  Receipt Date: 20040407
  Transmission Date: 20050107
  Serious: Yes (Hospitalization, Other)
  Sender: FDA-Public Use
  Company Number: FR-BRISTOL-MYERS SQUIBB COMPANY-12554051

PATIENT
  Age: 40 Year
  Sex: Male

DRUGS (2)
  1. TAXOL [Suspect]
     Indication: BRONCHIAL CARCINOMA
     Route: 042
     Dates: start: 20031101, end: 20040406
  2. DAFALGAN [Concomitant]
     Dates: start: 20040201, end: 20040406

REACTIONS (1)
  - HEPATITIS FULMINANT [None]
